FAERS Safety Report 20492728 (Version 1)
Quarter: 2022Q1

REPORT INFORMATION
  Report Type: Spontaneous
  Country: US (occurrence: US)
  Receive Date: 20220219
  Receipt Date: 20220219
  Transmission Date: 20220423
  Serious: Yes (Death, Life-Threatening)
  Sender: FDA-Public Use
  Company Number: US-MACLEODS PHARMACEUTICALS US LTD-MAC2022034406

PATIENT

DRUGS (2)
  1. OLANZAPINE [Suspect]
     Active Substance: OLANZAPINE
     Indication: Bipolar disorder
     Dosage: UNK
     Route: 065
  2. FLUOXETINE [Concomitant]
     Active Substance: FLUOXETINE HYDROCHLORIDE
     Indication: Bipolar disorder
     Dosage: UNK
     Route: 065

REACTIONS (5)
  - Ketoacidosis [Fatal]
  - Hepatic steatosis [Fatal]
  - Arteriosclerosis coronary artery [Fatal]
  - Pancreatitis necrotising [Fatal]
  - Hyperglycaemia [Fatal]
